FAERS Safety Report 11260927 (Version 1)
Quarter: 2015Q3

REPORT INFORMATION
  Report Type: Spontaneous
  Country: IT (occurrence: IT)
  Receive Date: 20150710
  Receipt Date: 20150710
  Transmission Date: 20151125
  Serious: Yes (Hospitalization, Other)
  Sender: FDA-Public Use
  Company Number: IT-BAYER-2015-376254

PATIENT
  Age: 80 Year
  Sex: Male

DRUGS (1)
  1. ACETYLSALICYLIC ACID({=100 MG) [Suspect]
     Active Substance: ASPIRIN
     Indication: ANTIPLATELET THERAPY
     Dosage: DAILY DOSE 100 MG
     Route: 048

REACTIONS (4)
  - Pneumocephalus [Recovered/Resolved]
  - Cerebral haemorrhage [Recovered/Resolved]
  - Cerebellar haemorrhage [Recovered/Resolved]
  - Subdural haematoma [Recovered/Resolved]
